FAERS Safety Report 5742442-8 (Version None)
Quarter: 2008Q2

REPORT INFORMATION
  Report Type: 
  Country: None (occurrence: None)
  Receive Date: 20080514
  Receipt Date: 20071221
  Transmission Date: 20081010
  Serious: Yes (Hospitalization)
  Sender: FDA-Public Use
  Company Number: 538551

PATIENT
  Age: 46 Year
  Sex: Female

DRUGS (11)
  1. KYTRIL [Suspect]
     Indication: NAUSEA
     Dosage: 2 MG 3 PER DAY
     Dates: start: 20050101
  2. KYTRIL [Suspect]
     Indication: VOMITING
     Dosage: 2 MG 3 PER DAY
     Dates: start: 20050101
  3. ZOFRAN [Suspect]
     Indication: DRUG USE FOR UNKNOWN INDICATION
     Dosage: 12 MG 3 PER DAY ORAL
     Route: 048
  4. PHENERGAN HCL [Concomitant]
  5. ELAVIL [Concomitant]
  6. ERYTHROMYCIN [Concomitant]
  7. 1 CONCOMITANT DRUG (GENERIC UNKNOWN) [Concomitant]
  8. ROZEREM (CLONAZEPAM) [Concomitant]
  9. 1 CONCOMITANT DRUG (GENERIC UNKNOWN) [Concomitant]
  10. NEXIUM [Concomitant]
  11. MOTILIUM [Concomitant]

REACTIONS (6)
  - DEHYDRATION [None]
  - DRUG INEFFECTIVE [None]
  - FEEDING TUBE COMPLICATION [None]
  - NAUSEA [None]
  - RETCHING [None]
  - VOMITING [None]
